FAERS Safety Report 21880162 (Version 2)
Quarter: 2023Q2

REPORT INFORMATION
  Report Type: Spontaneous
  Country: US (occurrence: US)
  Receive Date: 20230118
  Receipt Date: 20230510
  Transmission Date: 20230721
  Serious: No
  Sender: FDA-Public Use
  Company Number: US-SA-SAC20230117001244

PATIENT
  Age: 11 Year
  Sex: Male

DRUGS (4)
  1. ELOCTATE [Suspect]
     Active Substance: EFMOROCTOCOG ALFA
     Dosage: 2000 U, (+/- 10%) PRN
     Route: 042
  2. ELOCTATE [Suspect]
     Active Substance: EFMOROCTOCOG ALFA
     Dosage: 2000 U, (+/- 10%) PRN
     Route: 042
  3. ELOCTATE [Suspect]
     Active Substance: EFMOROCTOCOG ALFA
     Dosage: 2000 U, (+/- 10%) EVERY 3 DAYS FOR 12 DOSES
     Route: 042
  4. ELOCTATE [Suspect]
     Active Substance: EFMOROCTOCOG ALFA
     Dosage: 2000 U, (+/- 10%) EVERY 3 DAYS FOR 12 DOSES
     Route: 042

REACTIONS (3)
  - Traumatic haemorrhage [Recovered/Resolved]
  - Ligament sprain [Unknown]
  - Joint injury [Unknown]

NARRATIVE: CASE EVENT DATE: 20230107
